FAERS Safety Report 16281555 (Version 4)
Quarter: 2019Q3

REPORT INFORMATION
  Report Type: Report from Study
  Country: GB (occurrence: GB)
  Receive Date: 20190507
  Receipt Date: 20190902
  Transmission Date: 20191004
  Serious: Yes (Life-Threatening, Other)
  Sender: FDA-Public Use
  Company Number: GB-PFIZER INC-2019187609

PATIENT

DRUGS (1)
  1. PHENYTOIN SODIUM. [Suspect]
     Active Substance: PHENYTOIN SODIUM
     Indication: STATUS EPILEPTICUS
     Dosage: 20 MG/KG, UNK (ADMINISTERED OVER MINIMUM OF 20 MIN MAXIMUM DOSE 2 G,INFUSION RATE OF 1MG/KG PER MIN)
     Route: 041

REACTIONS (4)
  - Condition aggravated [Recovered/Resolved]
  - Partial seizures [Recovered/Resolved]
  - Depressed level of consciousness [Recovered/Resolved]
  - Hypotension [Recovered/Resolved]
